FAERS Safety Report 22157951 (Version 3)
Quarter: 2023Q4

REPORT INFORMATION
  Report Type: Spontaneous
  Country: NL (occurrence: NL)
  Receive Date: 20230330
  Receipt Date: 20231009
  Transmission Date: 20240109
  Serious: Yes (Hospitalization)
  Sender: FDA-Public Use
  Company Number: NL-BIOGEN-2023BI01195674

PATIENT
  Age: 44 Year
  Sex: Female
  Weight: 89 kg

DRUGS (2)
  1. TYSABRI [Suspect]
     Active Substance: NATALIZUMAB
     Indication: Multiple sclerosis
     Route: 050
     Dates: start: 2020
  2. TYSABRI [Suspect]
     Active Substance: NATALIZUMAB
     Dosage: AFTER A YEAR OF USING THE TYS SHE WAS PUT ON EID DOSING EVERY 6 WEEKS?NUMBER OF ADMINISTERED DOSE...
     Route: 050
     Dates: end: 202301

REACTIONS (3)
  - Progressive multifocal leukoencephalopathy [Unknown]
  - Immune reconstitution inflammatory syndrome [Unknown]
  - Prescribed underdose [Recovered/Resolved]

NARRATIVE: CASE EVENT DATE: 20221001
